FAERS Safety Report 20412490 (Version 3)
Quarter: 2022Q1

REPORT INFORMATION
  Report Type: Spontaneous
  Country: GB (occurrence: GB)
  Receive Date: 20220201
  Receipt Date: 20220216
  Transmission Date: 20220423
  Serious: Yes (Other)
  Sender: FDA-Public Use
  Company Number: GB-BAYER-2022A015290

PATIENT
  Age: 43 Year
  Sex: Female
  Weight: 70 kg

DRUGS (1)
  1. MIRENA [Suspect]
     Active Substance: LEVONORGESTREL
     Indication: Contraception
     Dosage: 20?G/DAY
     Route: 015
     Dates: start: 20140114, end: 20220128

REACTIONS (4)
  - Device breakage [Recovered/Resolved]
  - Device difficult to use [Recovered/Resolved]
  - Device use issue [None]
  - Complication of device removal [None]

NARRATIVE: CASE EVENT DATE: 20220128
